FAERS Safety Report 13323808 (Version 4)
Quarter: 2017Q2

REPORT INFORMATION
  Report Type: Spontaneous
  Country: JP (occurrence: JP)
  Receive Date: 20170310
  Receipt Date: 20170421
  Transmission Date: 20170830
  Serious: Yes (Hospitalization)
  Sender: FDA-Public Use
  Company Number: JP-ELI_LILLY_AND_COMPANY-JP201703001752

PATIENT
  Age: 66 Year
  Sex: Male
  Weight: 81 kg

DRUGS (10)
  1. CYMBALTA [Suspect]
     Active Substance: DULOXETINE HYDROCHLORIDE
     Dosage: 20 MG, QD
     Route: 048
     Dates: start: 20170309, end: 20170314
  2. 5 FU [Suspect]
     Active Substance: FLUOROURACIL
     Indication: COLON CANCER
     Dosage: 3500 MG, OTHER
     Route: 042
     Dates: start: 20170214, end: 20170214
  3. CYMBALTA [Suspect]
     Active Substance: DULOXETINE HYDROCHLORIDE
     Dosage: 60 MG, QD
     Route: 048
     Dates: start: 20161108, end: 20170301
  4. LEUCOVORIN                         /00566702/ [Suspect]
     Active Substance: LEUCOVORIN
     Indication: COLON CANCER
     Dosage: 300 MG, OTHER
     Route: 042
     Dates: start: 20170214, end: 20170214
  5. CYRAMZA [Suspect]
     Active Substance: RAMUCIRUMAB
     Indication: COLON CANCER
     Dosage: 500 MG, OTHER
     Route: 042
     Dates: start: 20170214, end: 20170214
  6. CYMBALTA [Suspect]
     Active Substance: DULOXETINE HYDROCHLORIDE
     Indication: NEURALGIA
     Dosage: 20 MG, QD
     Route: 048
     Dates: start: 20160929, end: 20161017
  7. CYMBALTA [Suspect]
     Active Substance: DULOXETINE HYDROCHLORIDE
     Dosage: 40 MG, QD
     Route: 048
     Dates: start: 20170302, end: 20170308
  8. ELPLAT [Concomitant]
     Active Substance: OXALIPLATIN
     Indication: COLON CANCER
     Route: 042
  9. IRINOTECAN HYDROCHLORIDE. [Suspect]
     Active Substance: IRINOTECAN HYDROCHLORIDE
     Indication: COLON CANCER
     Dosage: 220 MG, OTHER
     Route: 042
     Dates: start: 20170214, end: 20170214
  10. CYMBALTA [Suspect]
     Active Substance: DULOXETINE HYDROCHLORIDE
     Dosage: 40 MG, QD
     Route: 048
     Dates: start: 20161018, end: 20161107

REACTIONS (5)
  - Off label use [Recovered/Resolved]
  - Hyperammonaemia [Recovering/Resolving]
  - Speech disorder [Recovered/Resolved]
  - Malaise [Recovering/Resolving]
  - Liver disorder [Not Recovered/Not Resolved]

NARRATIVE: CASE EVENT DATE: 20160929
